FAERS Safety Report 6457934-6 (Version None)
Quarter: 2009Q4

REPORT INFORMATION
  Report Type: 
  Country: None (occurrence: None)
  Receive Date: 20091125
  Receipt Date: 20090513
  Transmission Date: 20100525
  Serious: No
  Sender: FDA-Public Use
  Company Number: US-AMGEN-KDL346033

PATIENT
  Sex: Female
  Weight: 52 kg

DRUGS (5)
  1. ENBREL [Suspect]
     Indication: JUVENILE ARTHRITIS
     Route: 058
     Dates: start: 20090428
  2. METHOTREXATE [Concomitant]
     Route: 058
     Dates: start: 20090304
  3. PLAQUENIL [Concomitant]
     Dates: start: 20090304
  4. FOLIC ACID [Concomitant]
     Dates: start: 20090304
  5. PREDNISONE TAB [Concomitant]
     Dates: start: 20090304

REACTIONS (1)
  - INJECTION SITE PAIN [None]
